FAERS Safety Report 10418872 (Version 2)
Quarter: 2015Q1

REPORT INFORMATION
  Report Type: Report from Study
  Country: US (occurrence: US)
  Receive Date: 20140829
  Receipt Date: 20150323
  Transmission Date: 20150720
  Serious: Yes (Hospitalization)
  Sender: FDA-Public Use
  Company Number: US-GILEAD-2014-0113483

PATIENT
  Age: 57 Year
  Sex: Female

DRUGS (5)
  1. VIAGRA [Concomitant]
     Active Substance: SILDENAFIL CITRATE
  2. COUMADIN [Concomitant]
     Active Substance: WARFARIN SODIUM
  3. AMBRISENTAN [Suspect]
     Active Substance: AMBRISENTAN
     Indication: UNEVALUABLE EVENT
     Dosage: 5 MG, QD
     Route: 065
     Dates: start: 20100526
  4. VENTAVIS [Concomitant]
     Active Substance: ILOPROST
  5. AMBRISENTAN [Suspect]
     Active Substance: AMBRISENTAN
     Indication: PULMONARY ARTERIAL HYPERTENSION

REACTIONS (5)
  - Cardiac disorder [Unknown]
  - Fall [Unknown]
  - Unevaluable event [Unknown]
  - Head injury [Unknown]
  - Dyspnoea [Unknown]
